FAERS Safety Report 23917755 (Version 2)
Quarter: 2024Q2

REPORT INFORMATION
  Report Type: Spontaneous
  Country: US (occurrence: US)
  Receive Date: 20240530
  Receipt Date: 20240613
  Transmission Date: 20240717
  Serious: Yes (Hospitalization, Other)
  Sender: FDA-Public Use
  Company Number: US-009507513-2405USA007312

PATIENT
  Sex: Male
  Weight: 85.7 kg

DRUGS (7)
  1. KEYTRUDA [Suspect]
     Active Substance: PEMBROLIZUMAB
     Indication: Lung neoplasm malignant
     Dosage: EVERY THREE WEEKS; COMPLETED 10 CYCLES ON CYCLE 13
     Route: 042
     Dates: start: 20230113, end: 202311
  2. CISPLATIN [Suspect]
     Active Substance: CISPLATIN
     Indication: Targeted cancer therapy
     Dosage: 4 CYCLES
     Dates: start: 20230113
  3. CISPLATIN [Suspect]
     Active Substance: CISPLATIN
     Dosage: CYCLE 2
     Dates: end: 20230317
  4. TAXOL [Suspect]
     Active Substance: PACLITAXEL
     Indication: Targeted cancer therapy
     Dosage: CYCLE 1; HAD 4 CYCLES
     Dates: start: 20230113, end: 20230202
  5. AMLODIPINE [Concomitant]
     Active Substance: AMLODIPINE BESYLATE
  6. HYDROCHLOROTHIAZIDE [Concomitant]
     Active Substance: HYDROCHLOROTHIAZIDE
  7. ROSUVASTATIN CALCIUM [Concomitant]
     Active Substance: ROSUVASTATIN CALCIUM

REACTIONS (13)
  - Coronary artery occlusion [Unknown]
  - Intracranial pressure increased [Not Recovered/Not Resolved]
  - Papilloedema [Not Recovered/Not Resolved]
  - Retinal oedema [Unknown]
  - Brain oedema [Unknown]
  - Cerebral atrophy [Unknown]
  - Cerebellar atrophy [Unknown]
  - Cerebral small vessel ischaemic disease [Unknown]
  - Central obesity [Unknown]
  - Pleural effusion [Unknown]
  - Depression [Unknown]
  - Adverse drug reaction [Unknown]
  - Product use issue [Unknown]

NARRATIVE: CASE EVENT DATE: 20230101
